FAERS Safety Report 15365464 (Version 7)
Quarter: 2019Q2

REPORT INFORMATION
  Report Type: Spontaneous
  Country: US (occurrence: US)
  Receive Date: 20180910
  Receipt Date: 20190529
  Transmission Date: 20190711
  Serious: No
  Sender: FDA-Public Use
  Company Number: US-PFIZER INC-2018361725

PATIENT
  Age: 65 Year
  Sex: Female
  Weight: 64 kg

DRUGS (25)
  1. IBRANCE [Suspect]
     Active Substance: PALBOCICLIB
     Dosage: 125 MG, CYCLIC (ONCE DAILY)
     Dates: start: 2018
  2. IBRANCE [Suspect]
     Active Substance: PALBOCICLIB
     Dosage: 125 MG, CYCLIC (ONCE DAILY FOR 21 DAYS, 7 DAYS OFF)
     Route: 048
     Dates: start: 201705
  3. ALPRAZOLAM. [Concomitant]
     Active Substance: ALPRAZOLAM
     Indication: STRESS
     Dosage: 0.05 MG, AS NEEDED
     Dates: start: 2010
  4. ONDANSETRON [Concomitant]
     Active Substance: ONDANSETRON
     Dosage: 4 MG, AS NEEDED
     Dates: start: 201804
  5. IBRANCE [Suspect]
     Active Substance: PALBOCICLIB
     Dosage: 125 MG, CYCLIC (125 MG DAILY FOR 21DAYS, EVERY 28 DAYS)
     Route: 048
     Dates: start: 201805, end: 2018
  6. IBRANCE [Suspect]
     Active Substance: PALBOCICLIB
     Dosage: 125 MG, CYCLIC (ONCE DAILY)
     Dates: start: 2018, end: 2018
  7. ADVIL [Concomitant]
     Active Substance: IBUPROFEN
     Dosage: 200 MG, UNK
     Dates: start: 20180501
  8. IBRANCE [Suspect]
     Active Substance: PALBOCICLIB
     Dosage: 125 MG, CYCLIC (125 MG DAILY FOR 21DAYS, EVERY 28 DAYS)
     Route: 048
     Dates: start: 201806, end: 2018
  9. IBRANCE [Suspect]
     Active Substance: PALBOCICLIB
     Dosage: UNK
     Dates: start: 2018, end: 2018
  10. LETROZOLE. [Concomitant]
     Active Substance: LETROZOLE
     Indication: BREAST CANCER FEMALE
     Dosage: 2.5 MG, 1X/DAY
     Dates: start: 20180501
  11. FLONASE [Concomitant]
     Active Substance: FLUTICASONE PROPIONATE
     Dosage: UNK (50 MCG/ACT), AS NEEDED
  12. CLARITIN [Concomitant]
     Active Substance: LORATADINE
     Dosage: 10 MG, AS NEEDED
  13. IBRANCE [Suspect]
     Active Substance: PALBOCICLIB
     Dosage: 125 MG, CYCLIC (125 MG DAILY FOR 21DAYS, EVERY 28 DAYS)
     Route: 048
     Dates: start: 201808, end: 2018
  14. IBRANCE [Suspect]
     Active Substance: PALBOCICLIB
     Dosage: 125 MG, CYCLIC (125 MG DAILY FOR 21DAYS, EVERY 28 DAYS)
     Route: 048
     Dates: start: 201809, end: 2018
  15. IMODIUM [Concomitant]
     Active Substance: LOPERAMIDE HYDROCHLORIDE
     Indication: DIARRHOEA
     Dosage: UNK
     Dates: start: 20181104, end: 20181106
  16. BENADRYL [Concomitant]
     Active Substance: DIPHENHYDRAMINE HYDROCHLORIDE
     Dosage: 25 MG, AS NEEDED
  17. IBRANCE [Suspect]
     Active Substance: PALBOCICLIB
     Dosage: 125 MG, CYCLIC (125 MG DAILY FOR 21DAYS, EVERY 28 DAYS)
     Route: 048
     Dates: start: 201807, end: 2018
  18. IBRANCE [Suspect]
     Active Substance: PALBOCICLIB
     Dosage: 125 MG, CYCLIC (ONCE DAILY)
     Dates: start: 2018, end: 2018
  19. STOOL SOFTENER (DOCUSATE) [Concomitant]
     Active Substance: DOCUSATE
     Dosage: UNK, AS NEEDED
     Dates: start: 201806
  20. IBRANCE [Suspect]
     Active Substance: PALBOCICLIB
     Dosage: 125 MG, CYCLIC (ONCE DAILY)
     Dates: start: 2018, end: 2018
  21. AIRBORNE [Concomitant]
     Active Substance: HERBALS\MINERALS\VITAMINS
     Indication: IMMUNE SYSTEM DISORDER
     Dosage: UNK
     Dates: start: 201809
  22. CALCIUM 600+D [Concomitant]
     Active Substance: CALCIUM\VITAMIN D
     Dosage: UNK UNK, 2X/DAY
     Dates: start: 20180501
  23. IBRANCE [Suspect]
     Active Substance: PALBOCICLIB
     Indication: BREAST CANCER METASTATIC
     Dosage: 125 MG, CYCLIC (DAILY FOR 21DAYS, EVERY 28 DAYS)
     Route: 048
     Dates: start: 20180501, end: 201805
  24. LISINOPRIL. [Concomitant]
     Active Substance: LISINOPRIL
     Indication: HYPERTENSION
     Dosage: 10 MG, 1X/DAY
     Dates: start: 2008
  25. TRAMADOL. [Concomitant]
     Active Substance: TRAMADOL
     Dosage: 50 MG, UNK
     Dates: start: 201804

REACTIONS (7)
  - Impaired healing [Not Recovered/Not Resolved]
  - Fatigue [Not Recovered/Not Resolved]
  - Alopecia [Not Recovered/Not Resolved]
  - Impatience [Unknown]
  - Myalgia [Not Recovered/Not Resolved]
  - Infection [Not Recovered/Not Resolved]
  - Upper respiratory tract infection [Recovered/Resolved]

NARRATIVE: CASE EVENT DATE: 2018
